FAERS Safety Report 16289810 (Version 1)
Quarter: 2019Q2

REPORT INFORMATION
  Report Type: Spontaneous
  Country: US (occurrence: US)
  Receive Date: 20190403
  Receipt Date: 20190403
  Transmission Date: 20190711
  Serious: Yes (Hospitalization)
  Sender: FDA-Public Use
  Company Number: None

PATIENT
  Sex: Male
  Weight: 81.6 kg

DRUGS (6)
  1. METHOTREXATE. [Suspect]
     Active Substance: METHOTREXATE
     Dates: end: 20190311
  2. CYTARABINE. [Suspect]
     Active Substance: CYTARABINE
     Dates: end: 20190304
  3. DAUNORUBICIN [Suspect]
     Active Substance: DAUNORUBICIN
     Dates: end: 20190325
  4. VINCRISTINE SULFATE. [Suspect]
     Active Substance: VINCRISTINE SULFATE
     Dates: end: 20190325
  5. DEXAMETHASONE. [Suspect]
     Active Substance: DEXAMETHASONE
     Dates: end: 20190321
  6. PEG-L-ASPARAGINASE [Suspect]
     Active Substance: PEGASPARGASE

REACTIONS (8)
  - Pyrexia [None]
  - Iatrogenic injury [None]
  - Fall [None]
  - Inflammation [None]
  - Hypercoagulation [None]
  - Restlessness [None]
  - Cerebral infarction [None]
  - Cerebral venous thrombosis [None]

NARRATIVE: CASE EVENT DATE: 20190329
